FAERS Safety Report 11252242 (Version 1)
Quarter: 2015Q3

REPORT INFORMATION
  Report Type: Spontaneous
  Country: US (occurrence: US)
  Receive Date: 20150708
  Receipt Date: 20150708
  Transmission Date: 20151125
  Serious: Yes (Other)
  Sender: FDA-Public Use
  Company Number: US-ELI_LILLY_AND_COMPANY-US201306000537

PATIENT
  Age: 76 Year
  Sex: Male
  Weight: 56.69 kg

DRUGS (13)
  1. VITAMIN D [Concomitant]
     Active Substance: CHOLECALCIFEROL
  2. MIRALAX [Concomitant]
     Active Substance: POLYETHYLENE GLYCOL 3350
  3. CARBOPLATIN. [Concomitant]
     Active Substance: CARBOPLATIN
     Indication: NON-SMALL CELL LUNG CANCER METASTATIC
     Dosage: UNK
     Dates: start: 20120913
  4. FOLIC ACID. [Concomitant]
     Active Substance: FOLIC ACID
     Indication: SUPPLEMENTATION THERAPY
     Dosage: 1 MG, QD
     Route: 048
     Dates: start: 201208
  5. METOPROLOL [Concomitant]
     Active Substance: METOPROLOL
  6. PHENOBARBITAL. [Concomitant]
     Active Substance: PHENOBARBITAL
  7. DEXAMETHAZONE [Concomitant]
     Active Substance: DEXAMETHASONE
     Dosage: 4 MG, OTHER
     Route: 048
     Dates: start: 201209
  8. VITAMIN B12 [Concomitant]
     Active Substance: CYANOCOBALAMIN
     Indication: SUPPLEMENTATION THERAPY
     Dosage: 1000 UG, OTHER
     Route: 030
     Dates: start: 20120814
  9. FAMOTIDINE. [Concomitant]
     Active Substance: FAMOTIDINE
  10. ZOMETA [Concomitant]
     Active Substance: ZOLEDRONIC ACID
  11. MS CONTIN [Concomitant]
     Active Substance: MORPHINE SULFATE
  12. CALCIUM [Concomitant]
     Active Substance: CALCIUM
  13. ALIMTA [Suspect]
     Active Substance: PEMETREXED DISODIUM
     Indication: NON-SMALL CELL LUNG CANCER METASTATIC
     Dosage: 500 MG/M2, OTHER
     Route: 042
     Dates: start: 20120913, end: 20130418

REACTIONS (3)
  - Malignant neoplasm progression [Unknown]
  - Off label use [Recovered/Resolved]
  - Oedema peripheral [Recovered/Resolved]

NARRATIVE: CASE EVENT DATE: 20120913
